FAERS Safety Report 23905965 (Version 2)
Quarter: 2024Q2

REPORT INFORMATION
  Report Type: Spontaneous
  Country: JP (occurrence: JP)
  Receive Date: 20240527
  Receipt Date: 20240605
  Transmission Date: 20240715
  Serious: Yes (Other)
  Sender: FDA-Public Use
  Company Number: JP-SAKK-2024SA152615AA

PATIENT
  Age: 64 Year
  Sex: Male

DRUGS (3)
  1. DOCETAXEL [Suspect]
     Active Substance: DOCETAXEL\DOCETAXEL ANHYDROUS
     Indication: Hypopharyngeal cancer stage IV
     Route: 041
  2. CISPLATIN [Concomitant]
     Active Substance: CISPLATIN
     Indication: Hypopharyngeal cancer stage IV
     Route: 065
  3. FLUOROURACIL [Concomitant]
     Active Substance: FLUOROURACIL
     Indication: Hypopharyngeal cancer stage IV
     Route: 065

REACTIONS (3)
  - Intestinal ischaemia [Recovering/Resolving]
  - Pyrexia [Recovering/Resolving]
  - Shock [Unknown]
